FAERS Safety Report 9783201 (Version 2)
Quarter: 2014Q2

REPORT INFORMATION
  Report Type: Spontaneous
  Country: IT (occurrence: IT)
  Receive Date: 20131226
  Receipt Date: 20140401
  Transmission Date: 20141212
  Serious: Yes (Hospitalization)
  Sender: FDA-Public Use
  Company Number: IT-SA-2013SA131328

PATIENT
  Age: 92 Year
  Sex: Female

DRUGS (4)
  1. LASIX [Suspect]
     Indication: HYPERTENSION
     Route: 048
     Dates: start: 20130206, end: 20130206
  2. VALPRESSION [Suspect]
     Indication: HYPERTENSION
     Route: 048
     Dates: start: 20130106, end: 20130206
  3. ACETYLSALICYLIC ACID [Concomitant]
  4. PARACETAMOL [Concomitant]

REACTIONS (1)
  - Presyncope [Recovering/Resolving]
